FAERS Safety Report 9756081 (Version 1)
Quarter: 2013Q4

REPORT INFORMATION
  Report Type: Spontaneous
  Country: US (occurrence: US)
  Receive Date: 20131213
  Receipt Date: 20131213
  Transmission Date: 20140711
  Serious: No
  Sender: FDA-Public Use
  Company Number: US-GLAXOSMITHKLINE-A1029232A

PATIENT
  Age: 74 Year
  Sex: Female

DRUGS (4)
  1. NICODERM CQ CLEAR 21MG [Suspect]
     Indication: EX-TOBACCO USER
  2. NICODERM CQ 21MG [Suspect]
     Indication: EX-TOBACCO USER
  3. VENTOLIN INHALER [Concomitant]
  4. NEBULIZER [Concomitant]

REACTIONS (5)
  - Dyspnoea [Recovered/Resolved]
  - Dyspnoea [Recovered/Resolved]
  - Dyspnoea [Recovered/Resolved]
  - Asthenia [Not Recovered/Not Resolved]
  - Overdose [Unknown]
